FAERS Safety Report 9778962 (Version 1)
Quarter: 2013Q4

REPORT INFORMATION
  Report Type: Spontaneous
  Country: AT (occurrence: AT)
  Receive Date: 20131223
  Receipt Date: 20131223
  Transmission Date: 20140711
  Serious: Yes (Death, Other)
  Sender: FDA-Public Use
  Company Number: AT-AMGEN-AUTSP2013088776

PATIENT
  Age: 61 Year
  Sex: Male

DRUGS (3)
  1. CINACALCET HCL [Suspect]
     Indication: PRODUCT USED FOR UNKNOWN INDICATION
     Dosage: 60 MG, UNK
     Route: 065
  2. SODIUM THIOSULFATE [Concomitant]
     Dosage: 25 G, Q3WK
     Route: 065
  3. CALCIUM [Concomitant]
     Route: 065

REACTIONS (4)
  - Cardiac death [Fatal]
  - Pneumonia aspiration [Unknown]
  - Endocarditis [Unknown]
  - Nausea [Unknown]
